FAERS Safety Report 19513977 (Version 1)
Quarter: 2021Q3

REPORT INFORMATION
  Report Type: Spontaneous
  Country: US (occurrence: US)
  Receive Date: 20210709
  Receipt Date: 20210709
  Transmission Date: 20211014
  Serious: No
  Sender: FDA-Public Use
  Company Number: US-ASTRAZENECA-2021A527956

PATIENT
  Age: 69 Year
  Sex: Female
  Weight: 77.1 kg

DRUGS (9)
  1. BYDUREON BCISE [Suspect]
     Active Substance: EXENATIDE
     Indication: DIABETES MELLITUS
     Route: 058
     Dates: start: 20210613
  2. ENTRESTO [Concomitant]
     Active Substance: SACUBITRIL\VALSARTAN
  3. POTASSIUM [Concomitant]
     Active Substance: POTASSIUM
  4. EZETIMIBE. [Concomitant]
     Active Substance: EZETIMIBE
  5. BYDUREON [Suspect]
     Active Substance: EXENATIDE
     Route: 065
  6. CARVEDILOL. [Concomitant]
     Active Substance: CARVEDILOL
  7. ASPIRIN 81MG [Concomitant]
     Active Substance: ASPIRIN
  8. VASCEPA [Concomitant]
     Active Substance: ICOSAPENT ETHYL
  9. METFORMIN [Concomitant]
     Active Substance: METFORMIN HYDROCHLORIDE

REACTIONS (3)
  - Incorrect dose administered by device [Unknown]
  - Device issue [Unknown]
  - Cardiomegaly [Unknown]

NARRATIVE: CASE EVENT DATE: 2019
